FAERS Safety Report 5571678-4 (Version None)
Quarter: 2007Q4

REPORT INFORMATION
  Report Type: 
  Country: None (occurrence: None)
  Receive Date: 20071221
  Receipt Date: 20071022
  Transmission Date: 20080405
  Serious: No
  Sender: FDA-Public Use
  Company Number: US-BAYER-US-2007-038834

PATIENT
  Age: 21 Year
  Sex: Female
  Weight: 100 kg

DRUGS (4)
  1. YAZ [Suspect]
     Indication: ORAL CONTRACEPTION
     Route: 048
     Dates: start: 20070801
  2. ZYRTEC [Concomitant]
  3. LEXAPRO [Concomitant]
  4. GUAIFENESIN W/PSEUDOEPHEDRINE [Concomitant]

REACTIONS (3)
  - DEPRESSION [None]
  - IRRITABILITY [None]
  - MOOD ALTERED [None]
